FAERS Safety Report 13440478 (Version 1)
Quarter: 2017Q2

REPORT INFORMATION
  Report Type: Spontaneous
  Country: US (occurrence: US)
  Receive Date: 20170413
  Receipt Date: 20170413
  Transmission Date: 20170830
  Serious: No
  Sender: FDA-Public Use
  Company Number: US-ASTELLAS-2016US047327

PATIENT
  Age: 71 Year
  Sex: Male

DRUGS (9)
  1. RAPAMUNE [Suspect]
     Active Substance: SIROLIMUS
     Indication: LUNG TRANSPLANT
     Route: 048
     Dates: start: 20160805, end: 20160825
  2. AMLODIPINE [Concomitant]
     Active Substance: AMLODIPINE BESYLATE
     Indication: LUNG TRANSPLANT
     Route: 065
  3. PROGRAF [Suspect]
     Active Substance: TACROLIMUS\TACROLIMUS ANHYDROUS
     Indication: LUNG TRANSPLANT
     Dosage: 0.5 MG, ONCE DAILY
     Route: 048
  4. OMEPRAZOLE. [Concomitant]
     Active Substance: OMEPRAZOLE
     Indication: LUNG TRANSPLANT
     Route: 065
  5. SOTALOL HCL [Concomitant]
     Active Substance: SOTALOL
     Indication: LUNG TRANSPLANT
     Dosage: (1 TO 2 DF) ONCE DAILY
     Route: 065
  6. SMZ-TMP [Concomitant]
     Active Substance: SULFAMETHOXAZOLE\TRIMETHOPRIM
     Indication: LUNG TRANSPLANT
     Route: 065
  7. PREDNISONE. [Concomitant]
     Active Substance: PREDNISONE
     Indication: PRODUCT USED FOR UNKNOWN INDICATION
     Route: 065
  8. AZITHROMYCIN ANHYDROUS. [Concomitant]
     Active Substance: AZITHROMYCIN ANHYDROUS
     Indication: PRODUCT USED FOR UNKNOWN INDICATION
     Dosage: 1 DF, ONCE DAILY (ON MONDAY, WEDNESDAY AND FRIDAY)
     Route: 065
  9. PROGRAF [Suspect]
     Active Substance: TACROLIMUS\TACROLIMUS ANHYDROUS
     Dosage: 0.5 MG, TWICE DAILY
     Route: 048
     Dates: start: 2007

REACTIONS (21)
  - Sinus headache [Recovering/Resolving]
  - Gingival pain [Recovering/Resolving]
  - Oropharyngeal pain [Recovering/Resolving]
  - Influenza like illness [Recovering/Resolving]
  - Pyrexia [Recovering/Resolving]
  - Fatigue [Unknown]
  - Epistaxis [Recovering/Resolving]
  - Immune system disorder [Recovering/Resolving]
  - Asthenia [Unknown]
  - Laceration [Recovering/Resolving]
  - Sinus pain [Recovering/Resolving]
  - Malaise [Recovering/Resolving]
  - Dyspnoea [Unknown]
  - Skin abrasion [Recovering/Resolving]
  - Off label use [Unknown]
  - Impaired healing [Recovering/Resolving]
  - Pain [Recovering/Resolving]
  - Oral pain [Recovering/Resolving]
  - Skin lesion [Recovering/Resolving]
  - Panic disorder [Recovering/Resolving]
  - Fatigue [Recovering/Resolving]

NARRATIVE: CASE EVENT DATE: 201609
